FAERS Safety Report 24012523 (Version 2)
Quarter: 2024Q3

REPORT INFORMATION
  Report Type: Report from Study
  Country: JP (occurrence: JP)
  Receive Date: 20240626
  Receipt Date: 20240702
  Transmission Date: 20241017
  Serious: Yes (Hospitalization, Other)
  Sender: JOHNSON AND JOHNSON
  Company Number: JP-VIIV HEALTHCARE ULC-JP2017JPN166730

PATIENT
  Age: 66 Year
  Sex: Male

DRUGS (107)
  1. RILPIVIRINE [Suspect]
     Active Substance: RILPIVIRINE
     Indication: HIV infection
     Dosage: 900 MG, QD
     Route: 065
     Dates: start: 20240202
  2. VOCABRIA [Suspect]
     Active Substance: CABOTEGRAVIR SODIUM
     Indication: HIV infection
     Dosage: 600 MG, QD
     Route: 065
     Dates: start: 20240202
  3. DOLUTEGRAVIR [Suspect]
     Active Substance: DOLUTEGRAVIR
     Indication: HIV infection
     Dosage: 50 MG, 1D
     Route: 048
     Dates: start: 20150114, end: 20230203
  4. TRUVADA [Concomitant]
     Active Substance: EMTRICITABINE\TENOFOVIR DISOPROXIL FUMARATE
     Indication: HIV infection
     Dosage: 1 DF, 1D
     Dates: start: 20111207, end: 20170830
  5. DESCOVY [Concomitant]
     Active Substance: EMTRICITABINE\TENOFOVIR ALAFENAMIDE FUMARATE
     Indication: HIV infection
     Dosage: 1 DF, 1D
     Dates: start: 20170831, end: 20230203
  6. MEROPENEM [Concomitant]
     Active Substance: MEROPENEM
     Indication: Prophylaxis
     Dosage: UNK
     Dates: start: 20170512, end: 20170517
  7. SOLU-CORTEF [Concomitant]
     Active Substance: HYDROCORTISONE SODIUM SUCCINATE
     Indication: Prophylaxis
     Dosage: UNK
     Dates: start: 20170501, end: 20170501
  8. SOLU-CORTEF [Concomitant]
     Active Substance: HYDROCORTISONE SODIUM SUCCINATE
     Dosage: UNK
     Dates: start: 20170522, end: 20170522
  9. SOLU-CORTEF [Concomitant]
     Active Substance: HYDROCORTISONE SODIUM SUCCINATE
     Dosage: UNK
     Dates: start: 20170612, end: 20170612
  10. SOLU-CORTEF [Concomitant]
     Active Substance: HYDROCORTISONE SODIUM SUCCINATE
     Dosage: UNK
     Dates: start: 20170706, end: 20170706
  11. SOLU-CORTEF [Concomitant]
     Active Substance: HYDROCORTISONE SODIUM SUCCINATE
     Dosage: UNK
     Dates: start: 20170724, end: 20170724
  12. SOLU-CORTEF [Concomitant]
     Active Substance: HYDROCORTISONE SODIUM SUCCINATE
     Dosage: UNK
     Dates: start: 20170817, end: 20170817
  13. SOLU-CORTEF [Concomitant]
     Active Substance: HYDROCORTISONE SODIUM SUCCINATE
     Dosage: UNK
     Dates: start: 20170914, end: 20170914
  14. SOLU-CORTEF [Concomitant]
     Active Substance: HYDROCORTISONE SODIUM SUCCINATE
     Dosage: UNK
     Dates: start: 20170921, end: 20170921
  15. SOLU-CORTEF [Concomitant]
     Active Substance: HYDROCORTISONE SODIUM SUCCINATE
     Dosage: UNK
     Dates: start: 20170928, end: 20170928
  16. SOLU-CORTEF [Concomitant]
     Active Substance: HYDROCORTISONE SODIUM SUCCINATE
     Dosage: UNK
     Dates: start: 20171005, end: 20171005
  17. LEVOFLOXACIN [Concomitant]
     Active Substance: LEVOFLOXACIN
     Indication: Prophylaxis
     Dosage: UNK
     Dates: start: 20170517, end: 20171117
  18. LEVOFLOXACIN [Concomitant]
     Active Substance: LEVOFLOXACIN
     Dosage: UNK
     Dates: start: 20190727, end: 20200618
  19. AMOXICILLIN [Concomitant]
     Active Substance: AMOXICILLIN
     Indication: Product used for unknown indication
     Dosage: UNK
     Dates: start: 20171117, end: 20171215
  20. PROBENECID [Concomitant]
     Active Substance: PROBENECID
     Indication: Product used for unknown indication
     Dosage: UNK
     Dates: start: 20171117, end: 20171215
  21. PEGFILGRASTIM [Concomitant]
     Active Substance: PEGFILGRASTIM
     Indication: Prophylaxis
     Dosage: UNK
     Dates: start: 20170615, end: 20170615
  22. PEGFILGRASTIM [Concomitant]
     Active Substance: PEGFILGRASTIM
     Dosage: UNK
     Dates: start: 20170708, end: 20170708
  23. PEGFILGRASTIM [Concomitant]
     Active Substance: PEGFILGRASTIM
     Dosage: UNK
     Dates: start: 20170727, end: 20170727
  24. PEGFILGRASTIM [Concomitant]
     Active Substance: PEGFILGRASTIM
     Dosage: UNK
     Dates: start: 20170822, end: 20170822
  25. SULFAMETHOXAZOLE\TRIMETHOPRIM [Concomitant]
     Active Substance: SULFAMETHOXAZOLE\TRIMETHOPRIM
     Indication: Prophylaxis
     Dosage: UNK
     Dates: start: 20170402, end: 20180914
  26. SULFAMETHOXAZOLE\TRIMETHOPRIM [Concomitant]
     Active Substance: SULFAMETHOXAZOLE\TRIMETHOPRIM
     Dosage: UNK
     Dates: start: 20191018, end: 20230106
  27. FEBUXOSTAT [Concomitant]
     Active Substance: FEBUXOSTAT
     Indication: Prophylaxis
     Dosage: UNK
     Route: 048
     Dates: start: 20170407, end: 20171117
  28. FEBUXOSTAT [Concomitant]
     Active Substance: FEBUXOSTAT
     Indication: Hyperuricaemia
     Dosage: UNK
     Route: 048
     Dates: start: 20221104
  29. BISOPROLOL FUMARATE [Concomitant]
     Active Substance: BISOPROLOL FUMARATE
     Indication: Prophylaxis
     Dosage: UNK
     Dates: start: 20170505, end: 20170914
  30. FUROSEMIDE [Concomitant]
     Active Substance: FUROSEMIDE
     Indication: Oedema
     Dosage: UNK
     Dates: start: 20210730
  31. VOCABRIA [Concomitant]
     Active Substance: CABOTEGRAVIR SODIUM
     Indication: HIV infection
     Dosage: 30 MG, QD
     Route: 048
     Dates: start: 20230203, end: 20230302
  32. VOCABRIA [Concomitant]
     Active Substance: CABOTEGRAVIR SODIUM
     Indication: HIV infection
     Dosage: 600 MG, QD
     Dates: start: 20230303
  33. EDURANT [Concomitant]
     Active Substance: RILPIVIRINE HYDROCHLORIDE
     Indication: HIV infection
     Dosage: 25 MG, QD
     Route: 065
     Dates: start: 20230203, end: 20230302
  34. SHAKUYAKUKANZOTO [Concomitant]
     Active Substance: HERBALS
     Indication: Muscle spasms
     Dosage: UNK
     Dates: start: 20170407, end: 20171117
  35. SHAKUYAKUKANZOTO [Concomitant]
     Active Substance: HERBALS
     Indication: Prophylaxis
     Dosage: UNK
     Dates: start: 20190412, end: 20190801
  36. MONTELUKAST SODIUM [Concomitant]
     Active Substance: MONTELUKAST SODIUM
     Indication: Rhinitis allergic
     Dosage: DOSE UNKNOWN
     Route: 048
     Dates: start: 20230404
  37. ADRIACIN [Concomitant]
     Active Substance: DOXORUBICIN HYDROCHLORIDE
     Dates: start: 20170502, end: 20170502
  38. ADRIACIN [Concomitant]
     Active Substance: DOXORUBICIN HYDROCHLORIDE
     Dates: start: 20170523, end: 20170523
  39. ADRIACIN [Concomitant]
     Active Substance: DOXORUBICIN HYDROCHLORIDE
     Dates: start: 20170612, end: 20170612
  40. ADRIACIN [Concomitant]
     Active Substance: DOXORUBICIN HYDROCHLORIDE
     Dates: start: 20170706, end: 20170706
  41. ADRIACIN [Concomitant]
     Active Substance: DOXORUBICIN HYDROCHLORIDE
     Dates: start: 20170724, end: 20170724
  42. ADRIACIN [Concomitant]
     Active Substance: DOXORUBICIN HYDROCHLORIDE
     Dates: start: 20170817, end: 20170817
  43. ALOXI [Concomitant]
     Active Substance: PALONOSETRON HYDROCHLORIDE
     Dates: start: 20170502, end: 20170502
  44. ALOXI [Concomitant]
     Active Substance: PALONOSETRON HYDROCHLORIDE
     Dates: start: 20170523, end: 20170523
  45. ALOXI [Concomitant]
     Active Substance: PALONOSETRON HYDROCHLORIDE
     Dates: start: 20170612, end: 20170612
  46. ALOXI [Concomitant]
     Active Substance: PALONOSETRON HYDROCHLORIDE
     Dates: start: 20170706, end: 20170706
  47. ALOXI [Concomitant]
     Active Substance: PALONOSETRON HYDROCHLORIDE
     Dates: start: 20170724, end: 20170724
  48. ALOXI [Concomitant]
     Active Substance: PALONOSETRON HYDROCHLORIDE
     Dates: start: 20170817, end: 20170817
  49. AMBROXOL HYDROCHLORIDE [Concomitant]
     Active Substance: AMBROXOL HYDROCHLORIDE
     Dates: start: 20190720, end: 20191114
  50. EMEND [Concomitant]
     Active Substance: APREPITANT
     Dates: start: 20170502, end: 20170505
  51. EMEND [Concomitant]
     Active Substance: APREPITANT
     Dates: start: 20170523, end: 20170523
  52. EMEND [Concomitant]
     Active Substance: APREPITANT
     Dates: start: 20170612, end: 20170613
  53. EMEND [Concomitant]
     Active Substance: APREPITANT
     Dates: start: 20170703, end: 20170704
  54. EMEND [Concomitant]
     Active Substance: APREPITANT
     Dates: start: 20170724, end: 20170726
  55. EMEND [Concomitant]
     Active Substance: APREPITANT
     Dates: start: 20170817, end: 20170819
  56. CYCLOPHOSPHAMIDE [Concomitant]
     Active Substance: CYCLOPHOSPHAMIDE
     Dates: start: 20170523, end: 20170523
  57. CYCLOPHOSPHAMIDE [Concomitant]
     Active Substance: CYCLOPHOSPHAMIDE
     Dates: start: 20170612, end: 20170612
  58. CYCLOPHOSPHAMIDE [Concomitant]
     Active Substance: CYCLOPHOSPHAMIDE
     Dates: start: 20170706, end: 20170706
  59. CYCLOPHOSPHAMIDE [Concomitant]
     Active Substance: CYCLOPHOSPHAMIDE
     Dates: start: 20170724, end: 20170724
  60. CYCLOPHOSPHAMIDE [Concomitant]
     Active Substance: CYCLOPHOSPHAMIDE
     Dates: start: 20170817, end: 20170817
  61. ONCOVIN [Concomitant]
     Active Substance: VINCRISTINE SULFATE
     Dates: start: 20170502, end: 20170502
  62. ONCOVIN [Concomitant]
     Active Substance: VINCRISTINE SULFATE
     Dates: start: 20170523, end: 20170523
  63. ONCOVIN [Concomitant]
     Active Substance: VINCRISTINE SULFATE
     Dates: start: 20170612, end: 20170612
  64. ONCOVIN [Concomitant]
     Active Substance: VINCRISTINE SULFATE
     Dates: start: 20170706, end: 20170706
  65. ONCOVIN [Concomitant]
     Active Substance: VINCRISTINE SULFATE
     Dates: start: 20170724, end: 20170724
  66. ONCOVIN [Concomitant]
     Active Substance: VINCRISTINE SULFATE
     Dates: start: 20170817, end: 20170817
  67. CARBOCYSTEINE [Concomitant]
     Active Substance: CARBOCYSTEINE
     Dates: start: 20170405, end: 20180720
  68. CARBOCYSTEINE [Concomitant]
     Active Substance: CARBOCYSTEINE
     Dates: start: 20190720, end: 20191114
  69. LEVOFLOXACIN [Concomitant]
     Active Substance: LEVOFLOXACIN
     Dates: start: 20180302, end: 20180330
  70. GRAN D [Concomitant]
     Dates: start: 20170512, end: 20170514
  71. AMOXICILLIN [Concomitant]
     Active Substance: AMOXICILLIN
     Dates: start: 20171117, end: 20171215
  72. PEGFILGRASTIM [Concomitant]
     Active Substance: PEGFILGRASTIM
     Dates: start: 20170615, end: 20170615
  73. PEGFILGRASTIM [Concomitant]
     Active Substance: PEGFILGRASTIM
     Dates: start: 20170708, end: 20170708
  74. PEGFILGRASTIM [Concomitant]
     Active Substance: PEGFILGRASTIM
     Dates: start: 20170727, end: 20170727
  75. PEGFILGRASTIM [Concomitant]
     Active Substance: PEGFILGRASTIM
     Dates: start: 20170822, end: 20170822
  76. SINGULAIR [Concomitant]
     Active Substance: MONTELUKAST SODIUM
     Dates: start: 20170316, end: 20200813
  77. CEFTRIAXONE SODIUM [Concomitant]
     Active Substance: CEFTRIAXONE SODIUM
     Dates: start: 20170401, end: 20170513
  78. SOLITA T NO. 1 [Concomitant]
     Dates: start: 20170501, end: 20170502
  79. NICEPIE [Concomitant]
     Dates: start: 20181019, end: 20200618
  80. NAFTOPIDIL [Concomitant]
     Active Substance: NAFTOPIDIL
     Dates: start: 20170519, end: 20190515
  81. VALGANCICLOVIR HYDROCHLORIDE [Concomitant]
     Active Substance: VALGANCICLOVIR HYDROCHLORIDE
     Dates: start: 20170814, end: 20170831
  82. BISOPROLOL FUMARATE [Concomitant]
     Active Substance: BISOPROLOL FUMARATE
     Dates: start: 20170505, end: 20190914
  83. PREDONINE [Concomitant]
     Active Substance: PREDNISOLONE
     Dates: start: 20170504, end: 20170507
  84. PREDONINE [Concomitant]
     Active Substance: PREDNISOLONE
     Dates: start: 20170523, end: 20170528
  85. PREDONINE [Concomitant]
     Active Substance: PREDNISOLONE
     Dates: start: 20170612, end: 20170616
  86. PREDONINE [Concomitant]
     Active Substance: PREDNISOLONE
     Dates: start: 20170703, end: 20170708
  87. PREDONINE [Concomitant]
     Active Substance: PREDNISOLONE
     Dates: start: 20170724, end: 20170728
  88. PREDONINE [Concomitant]
     Active Substance: PREDNISOLONE
     Dates: start: 20170817, end: 20170821
  89. BROTIZOLAM [Concomitant]
     Active Substance: BROTIZOLAM
     Dates: start: 20170505, end: 20200813
  90. PROBENECID [Concomitant]
     Active Substance: PROBENECID
     Dates: start: 20171117, end: 20171215
  91. MEROPENEM [Concomitant]
     Active Substance: MEROPENEM
     Dates: start: 20170512, end: 20170517
  92. SILODOSIN [Concomitant]
     Active Substance: SILODOSIN
     Dates: start: 20190516, end: 20190806
  93. RITUXAN [Concomitant]
     Active Substance: RITUXIMAB
     Dates: start: 20170501, end: 20170501
  94. RITUXAN [Concomitant]
     Active Substance: RITUXIMAB
     Dates: start: 20170522, end: 20170522
  95. RITUXAN [Concomitant]
     Active Substance: RITUXIMAB
     Dates: start: 20170612, end: 20170612
  96. RITUXAN [Concomitant]
     Active Substance: RITUXIMAB
     Dates: start: 20170706, end: 20170706
  97. RITUXAN [Concomitant]
     Active Substance: RITUXIMAB
     Dates: start: 20170724, end: 20170724
  98. RITUXAN [Concomitant]
     Active Substance: RITUXIMAB
     Dates: start: 20170817, end: 20170817
  99. RITUXAN [Concomitant]
     Active Substance: RITUXIMAB
     Dates: start: 20170914, end: 20170914
  100. RITUXAN [Concomitant]
     Active Substance: RITUXIMAB
     Dates: start: 20170921, end: 20170921
  101. RITUXAN [Concomitant]
     Active Substance: RITUXIMAB
     Dates: start: 20170928, end: 20170928
  102. RITUXAN [Concomitant]
     Active Substance: RITUXIMAB
     Dates: start: 20171005, end: 20171005
  103. EPRAZINONE [Concomitant]
     Active Substance: EPRAZINONE
     Dates: start: 20190724, end: 20191114
  104. LEVOFLOXACIN HEMIHYDRATE [Concomitant]
     Active Substance: LEVOFLOXACIN
     Dates: start: 20170517, end: 20170517
  105. LEVOFLOXACIN HEMIHYDRATE [Concomitant]
     Active Substance: LEVOFLOXACIN
     Dates: start: 20190727, end: 20200618
  106. HERBALS [Concomitant]
     Active Substance: HERBALS
     Dates: start: 20170623, end: 20180316
  107. HERBALS [Concomitant]
     Active Substance: HERBALS
     Dates: start: 20180817, end: 20211022

REACTIONS (17)
  - Lymphoma [Recovering/Resolving]
  - Hepatitis B [Not Recovered/Not Resolved]
  - Neuropathy peripheral [Recovered/Resolved]
  - Cellulitis [Recovered/Resolved]
  - Lumbar spinal stenosis [Recovered/Resolved]
  - Pyrexia [Recovering/Resolving]
  - Insomnia [Recovering/Resolving]
  - Diarrhoea [Recovered/Resolved]
  - Cough variant asthma [Recovering/Resolving]
  - Rhinitis allergic [Recovering/Resolving]
  - Benign prostatic hyperplasia [Recovering/Resolving]
  - Muscle spasms [Recovered/Resolved]
  - Hepatic function abnormal [Not Recovered/Not Resolved]
  - Oedema peripheral [Not Recovered/Not Resolved]
  - Hyperuricaemia [Not Recovered/Not Resolved]
  - Constipation [Not Recovered/Not Resolved]
  - Rhinitis allergic [Not Recovered/Not Resolved]

NARRATIVE: CASE EVENT DATE: 20160511
